FAERS Safety Report 11647054 (Version 6)
Quarter: 2016Q1

REPORT INFORMATION
  Report Type: Report from Study
  Country: US (occurrence: US)
  Receive Date: 20151021
  Receipt Date: 20160221
  Transmission Date: 20160525
  Serious: Yes (Other)
  Sender: FDA-Public Use
  Company Number: US-AMGEN-USASL2015108711

PATIENT
  Age: 74 Year
  Sex: Male

DRUGS (1)
  1. KYPROLIS [Suspect]
     Active Substance: CARFILZOMIB
     Indication: PLASMA CELL MYELOMA
     Dosage: UNK, 2 TIMES/WK
     Route: 065
     Dates: start: 2015, end: 20160202

REACTIONS (20)
  - Feeling abnormal [Unknown]
  - Vision blurred [Not Recovered/Not Resolved]
  - Pollakiuria [Unknown]
  - Depression [Unknown]
  - Malaise [Unknown]
  - Asthenia [Unknown]
  - Neuropathy peripheral [Unknown]
  - Grip strength decreased [Unknown]
  - Walking aid user [Unknown]
  - Anuria [Recovering/Resolving]
  - Dizziness [Unknown]
  - Blood pressure increased [Unknown]
  - Fatigue [Unknown]
  - Platelet count decreased [Unknown]
  - Dizziness postural [Unknown]
  - Bedridden [Unknown]
  - Mobility decreased [Unknown]
  - Tremor [Unknown]
  - Stress [Unknown]
  - Hospice care [Unknown]

NARRATIVE: CASE EVENT DATE: 2015
